FAERS Safety Report 4677128-4 (Version None)
Quarter: 2005Q2

REPORT INFORMATION
  Report Type: 
  Country: None (occurrence: None)
  Receive Date: 20050525
  Receipt Date: 20050525
  Transmission Date: 20051028
  Serious: No
  Sender: FDA-Public Use
  Company Number: None

PATIENT
  Age: 34 Year
  Sex: Male
  Weight: 72.5755 kg

DRUGS (1)
  1. CRESTOR [Suspect]
     Indication: BLOOD CHOLESTEROL INCREASED
     Dosage: 1 PILL   ONCE DAILY   ORAL
     Route: 048
     Dates: start: 20050207, end: 20050214

REACTIONS (2)
  - DIFFICULTY IN WALKING [None]
  - MUSCLE SPASMS [None]
